FAERS Safety Report 8364435-7 (Version None)
Quarter: 2012Q2

REPORT INFORMATION
  Report Type: 
  Country: None (occurrence: None)
  Receive Date: 20120516
  Receipt Date: 20120507
  Transmission Date: 20120825
  Serious: Yes (Other)
  Sender: FDA-Public Use
  Company Number: CA-JNJFOC-20120204253

PATIENT
  Sex: Female
  Weight: 55 kg

DRUGS (13)
  1. REMICADE [Suspect]
     Route: 042
     Dates: start: 20111104
  2. CELLCEPT [Concomitant]
     Route: 048
  3. AMOXIL [Concomitant]
     Route: 048
  4. EMPRACET [Concomitant]
     Dosage: PER DAY AS NECESSSARY
     Route: 048
  5. REMICADE [Suspect]
     Indication: UVEITIS
     Route: 042
     Dates: start: 20111104
  6. REMICADE [Suspect]
     Route: 042
     Dates: start: 20111227, end: 20111227
  7. NEXIUM [Concomitant]
     Route: 048
  8. REMICADE [Suspect]
     Route: 042
  9. REMICADE [Suspect]
     Route: 042
  10. PIROXICAM [Concomitant]
     Route: 048
  11. REMICADE [Suspect]
     Indication: ANKYLOSING SPONDYLITIS
     Route: 042
     Dates: start: 20111227, end: 20111227
  12. BENADRYL [Concomitant]
     Indication: PREMEDICATION
     Route: 065
  13. DETROL [Concomitant]
     Route: 048

REACTIONS (2)
  - THROAT TIGHTNESS [None]
  - THROAT IRRITATION [None]
